FAERS Safety Report 8510427-4 (Version None)
Quarter: 2012Q3

REPORT INFORMATION
  Report Type: 
  Country: None (occurrence: None)
  Receive Date: 20120714
  Receipt Date: 20120710
  Transmission Date: 20120928
  Serious: Yes (Other)
  Sender: FDA-Public Use
  Company Number: PHHY2012CA059128

PATIENT
  Age: 67 Year
  Sex: Female

DRUGS (2)
  1. METRONIDAZOLE [Suspect]
     Dosage: 250 MG, UNK
     Route: 048
  2. METRONIDAZOLE [Suspect]
     Dosage: 500 MG, UNK
     Route: 042

REACTIONS (9)
  - VOMITING [None]
  - RASH PRURITIC [None]
  - PYREXIA [None]
  - DRUG RASH WITH EOSINOPHILIA AND SYSTEMIC SYMPTOMS [None]
  - PRESYNCOPE [None]
  - RASH MACULO-PAPULAR [None]
  - ERYTHEMA [None]
  - NAUSEA [None]
  - PRURITUS [None]
